FAERS Safety Report 7750015-0 (Version None)
Quarter: 2011Q3

REPORT INFORMATION
  Report Type: 
  Country: None (occurrence: None)
  Receive Date: 20110825
  Receipt Date: 20110630
  Transmission Date: 20111222
  Serious: No
  Sender: FDA-Public Use
  Company Number: 331170

PATIENT
  Sex: Male

DRUGS (1)
  1. VICTOZA [Suspect]
     Dosage: MG, QD, SUBCUTANEOUS
     Route: 058

REACTIONS (1)
  - NAUSEA [None]
